FAERS Safety Report 15244476 (Version 1)
Quarter: 2018Q3

REPORT INFORMATION
  Report Type: Spontaneous
  Country: US (occurrence: US)
  Receive Date: 20180712
  Receipt Date: 20180712
  Transmission Date: 20181010
  Serious: Yes (Death)
  Sender: FDA-Public Use
  Company Number: None

PATIENT
  Age: 61 Year
  Sex: Male
  Weight: 74.5 kg

DRUGS (2)
  1. CASODEX [Suspect]
     Active Substance: BICALUTAMIDE
     Dates: end: 20180618
  2. LEUPROLIDE ACETATE. [Suspect]
     Active Substance: LEUPROLIDE ACETATE
     Dates: end: 20180330

REACTIONS (8)
  - Pyrexia [None]
  - Sputum discoloured [None]
  - Hypotension [None]
  - Cough [None]
  - Dyspnoea [None]
  - Malignant neoplasm progression [None]
  - Tachycardia [None]
  - Pneumonia [None]

NARRATIVE: CASE EVENT DATE: 20180623
